FAERS Safety Report 10988856 (Version 2)
Quarter: 2015Q2

REPORT INFORMATION
  Report Type: Spontaneous
  Country: US (occurrence: US)
  Receive Date: 20150405
  Receipt Date: 20150525
  Transmission Date: 20150821
  Serious: No
  Sender: FDA-Public Use
  Company Number: US-JNJFOC-20150120468

PATIENT
  Age: 83 Year
  Sex: Male

DRUGS (7)
  1. TETRACYCLINE [Concomitant]
     Active Substance: TETRACYCLINE
     Indication: PYODERMA
     Route: 048
  2. PREDNISONE. [Concomitant]
     Active Substance: PREDNISONE
     Indication: PYODERMA
     Route: 048
     Dates: start: 201011
  3. CLOBETASOL [Concomitant]
     Active Substance: CLOBETASOL
     Indication: PYODERMA
     Route: 061
  4. PREDNISONE. [Concomitant]
     Active Substance: PREDNISONE
     Indication: PYODERMA
     Route: 048
     Dates: start: 201105
  5. INFLIXIMAB, RECOMBINANT [Suspect]
     Active Substance: INFLIXIMAB
     Indication: PYODERMA
     Dosage: 2 LOADING DOSES
     Route: 042
     Dates: start: 201101, end: 201109
  6. TACROLIMUS. [Concomitant]
     Active Substance: TACROLIMUS
     Indication: PYODERMA
     Route: 061
     Dates: end: 201109
  7. KENALOG [Concomitant]
     Active Substance: TRIAMCINOLONE ACETONIDE
     Indication: PYODERMA
     Route: 026

REACTIONS (2)
  - Product use issue [Unknown]
  - Therapeutic response unexpected [Unknown]
